FAERS Safety Report 8002456-4 (Version None)
Quarter: 2011Q4

REPORT INFORMATION
  Report Type: 
  Country: None (occurrence: None)
  Receive Date: 20111220
  Receipt Date: 20111213
  Transmission Date: 20120403
  Serious: Yes (Death)
  Sender: FDA-Public Use
  Company Number: 2011HGS-002598

PATIENT
  Age: 64 Year
  Sex: Female

DRUGS (22)
  1. FUROSEMIDE [Concomitant]
  2. FLEXERIL (CYCLOBENZAPRINE HYDROCHLORIDE) (CYCLOBENZAPRINE HYDROCHLORID [Concomitant]
  3. CALCIUM (CALCIUM) (CALCIUM) [Concomitant]
  4. CIPRO [Concomitant]
  5. COUMADIN 9WARFARIN SODIUM) (WARFARIN SODIUM) [Concomitant]
  6. HYDROCODONE (HYDROCODONE) (HYDROCODONE) [Concomitant]
  7. PREVACID (LANSOPRAZOLE) (LANSOPRAZOLE) [Concomitant]
  8. OXYGEN THERAPY (OXYGEN) (OXYGEN) [Concomitant]
  9. BENLYSTA [Suspect]
     Indication: SYSTEMIC LUPUS ERYTHEMATOSUS
     Dosage: 1 IN 2 WK, INTRAVENOUS (NOT OTHERWISE SPECIFIED)
     Route: 042
     Dates: start: 20110610, end: 20110625
  10. ASPIRIN [Concomitant]
  11. POTASSIUM SUPPLEMENT (POTASSIUM) (POTASSIUM) [Concomitant]
  12. TESSALON PERLE (BENZONATATE) (BENZONATATE) [Concomitant]
  13. VITAMIN E (TOCOPHEROL) (TOCOPHEROL) [Concomitant]
  14. PLAQUENIL (HYDROXYCHLOROQUINE SULFATE) (HYDROXYCHLOROQUINE SULFATE) [Concomitant]
  15. GABAPENTIN [Concomitant]
  16. PREDNISONE [Concomitant]
  17. VALTRED (VALACICLOVIR HYDROCHLORIDE) (VALACICLOVIR HYDROCHLORIDE) [Concomitant]
  18. VITAMIN D (ERGOCALCIFEROL0 (ERGOCALCIFEROL) [Concomitant]
  19. ALBUTEROL (SALBUTAMOL) (SALBUTAMOL) [Concomitant]
  20. MIRALAX (MACROGOL) (MACROGOL) [Concomitant]
  21. IRON SUPPLEMENT (IRON) (IRON) [Concomitant]
  22. ATENOLOL [Concomitant]

REACTIONS (1)
  - DEATH [None]
